FAERS Safety Report 23019630 (Version 3)
Quarter: 2025Q1

REPORT INFORMATION
  Report Type: Spontaneous
  Country: CA (occurrence: CA)
  Receive Date: 20231003
  Receipt Date: 20250217
  Transmission Date: 20250409
  Serious: Yes (Hospitalization, Other)
  Sender: SANDOZ
  Company Number: CA-002147023-NVSC2023CA022541

PATIENT
  Age: 62 Year
  Sex: Female
  Weight: 74 kg

DRUGS (73)
  1. METHOTREXATE [Suspect]
     Active Substance: METHOTREXATE
     Indication: Product used for unknown indication
     Route: 065
  2. OMALIZUMAB [Suspect]
     Active Substance: OMALIZUMAB
     Route: 058
  3. OMALIZUMAB [Suspect]
     Active Substance: OMALIZUMAB
     Indication: Asthma
     Dosage: 300 MG, Q4W
     Route: 058
  4. OMALIZUMAB [Suspect]
     Active Substance: OMALIZUMAB
     Dosage: 300 MG, Q4W
     Route: 058
  5. OMALIZUMAB [Suspect]
     Active Substance: OMALIZUMAB
     Dosage: 300 MG, Q4W
     Route: 058
  6. OMALIZUMAB [Suspect]
     Active Substance: OMALIZUMAB
     Dosage: 300 MG, Q4W
     Route: 058
  7. OMALIZUMAB [Suspect]
     Active Substance: OMALIZUMAB
     Dosage: 300 MG, Q4W
     Route: 058
  8. OMALIZUMAB [Suspect]
     Active Substance: OMALIZUMAB
     Dosage: 300 MG, Q4W
     Route: 058
  9. OMALIZUMAB [Suspect]
     Active Substance: OMALIZUMAB
     Dosage: 300 MG, Q4W
     Route: 058
  10. OMALIZUMAB [Suspect]
     Active Substance: OMALIZUMAB
     Dosage: 300 MG, Q4W
     Route: 058
  11. OMALIZUMAB [Suspect]
     Active Substance: OMALIZUMAB
     Indication: Asthma
     Route: 058
  12. OMALIZUMAB [Suspect]
     Active Substance: OMALIZUMAB
     Route: 058
  13. OMALIZUMAB [Suspect]
     Active Substance: OMALIZUMAB
     Route: 058
  14. OMALIZUMAB [Suspect]
     Active Substance: OMALIZUMAB
     Route: 058
  15. OMALIZUMAB [Suspect]
     Active Substance: OMALIZUMAB
     Route: 058
  16. OMALIZUMAB [Suspect]
     Active Substance: OMALIZUMAB
     Route: 058
  17. OMALIZUMAB [Suspect]
     Active Substance: OMALIZUMAB
     Route: 058
  18. OMALIZUMAB [Suspect]
     Active Substance: OMALIZUMAB
     Route: 058
  19. OMALIZUMAB [Suspect]
     Active Substance: OMALIZUMAB
     Route: 058
  20. OMALIZUMAB [Suspect]
     Active Substance: OMALIZUMAB
     Route: 058
  21. OMALIZUMAB [Suspect]
     Active Substance: OMALIZUMAB
     Route: 058
  22. OMALIZUMAB [Suspect]
     Active Substance: OMALIZUMAB
     Route: 058
  23. OMALIZUMAB [Suspect]
     Active Substance: OMALIZUMAB
     Route: 058
  24. OMALIZUMAB [Suspect]
     Active Substance: OMALIZUMAB
     Route: 058
  25. OMALIZUMAB [Suspect]
     Active Substance: OMALIZUMAB
     Route: 058
  26. OMALIZUMAB [Suspect]
     Active Substance: OMALIZUMAB
     Route: 058
  27. OMALIZUMAB [Suspect]
     Active Substance: OMALIZUMAB
     Route: 058
  28. OMALIZUMAB [Suspect]
     Active Substance: OMALIZUMAB
     Route: 058
  29. OMALIZUMAB [Suspect]
     Active Substance: OMALIZUMAB
     Dosage: UNK UNK, Q4W
     Route: 058
  30. OMALIZUMAB [Suspect]
     Active Substance: OMALIZUMAB
     Dosage: UNK UNK, Q4W
     Route: 058
  31. OMALIZUMAB [Suspect]
     Active Substance: OMALIZUMAB
     Route: 058
  32. OMALIZUMAB [Suspect]
     Active Substance: OMALIZUMAB
     Route: 058
  33. OMALIZUMAB [Suspect]
     Active Substance: OMALIZUMAB
     Route: 058
  34. OMALIZUMAB [Suspect]
     Active Substance: OMALIZUMAB
     Route: 058
  35. OMALIZUMAB [Suspect]
     Active Substance: OMALIZUMAB
     Route: 058
  36. OMALIZUMAB [Suspect]
     Active Substance: OMALIZUMAB
     Route: 058
  37. OMALIZUMAB [Suspect]
     Active Substance: OMALIZUMAB
     Route: 058
  38. OMALIZUMAB [Suspect]
     Active Substance: OMALIZUMAB
     Route: 058
  39. OMALIZUMAB [Suspect]
     Active Substance: OMALIZUMAB
     Route: 058
  40. OMALIZUMAB [Suspect]
     Active Substance: OMALIZUMAB
     Route: 058
  41. OMALIZUMAB [Suspect]
     Active Substance: OMALIZUMAB
     Route: 058
  42. OMALIZUMAB [Suspect]
     Active Substance: OMALIZUMAB
     Route: 058
  43. OMALIZUMAB [Suspect]
     Active Substance: OMALIZUMAB
     Route: 058
  44. OMALIZUMAB [Suspect]
     Active Substance: OMALIZUMAB
     Route: 058
  45. OMALIZUMAB [Suspect]
     Active Substance: OMALIZUMAB
     Route: 058
  46. OMALIZUMAB [Suspect]
     Active Substance: OMALIZUMAB
     Route: 058
  47. OMALIZUMAB [Suspect]
     Active Substance: OMALIZUMAB
     Route: 058
  48. OMALIZUMAB [Suspect]
     Active Substance: OMALIZUMAB
     Route: 058
  49. OMALIZUMAB [Suspect]
     Active Substance: OMALIZUMAB
     Route: 058
  50. OMALIZUMAB [Suspect]
     Active Substance: OMALIZUMAB
     Route: 058
  51. OMALIZUMAB [Suspect]
     Active Substance: OMALIZUMAB
     Route: 058
  52. OMALIZUMAB [Suspect]
     Active Substance: OMALIZUMAB
     Route: 058
  53. OMALIZUMAB [Suspect]
     Active Substance: OMALIZUMAB
     Route: 058
  54. OMALIZUMAB [Suspect]
     Active Substance: OMALIZUMAB
     Route: 058
  55. OMALIZUMAB [Suspect]
     Active Substance: OMALIZUMAB
     Route: 058
  56. OMALIZUMAB [Suspect]
     Active Substance: OMALIZUMAB
     Route: 058
  57. PENICILLIN [Suspect]
     Active Substance: PENICILLIN
     Indication: Product used for unknown indication
     Route: 065
  58. ZENHALE [Suspect]
     Active Substance: FORMOTEROL FUMARATE\MOMETASONE FUROATE
     Dosage: 2 DOSAGE FORM, QD
     Route: 065
  59. ZENHALE [Suspect]
     Active Substance: FORMOTEROL FUMARATE\MOMETASONE FUROATE
     Indication: Product used for unknown indication
     Dosage: 2 DOSAGE FORM, QD (AEROSOL, METERED DOSE)
     Route: 065
  60. ZENHALE [Suspect]
     Active Substance: FORMOTEROL FUMARATE\MOMETASONE FUROATE
     Dosage: 2 DOSAGE FORM, QD (AEROSOL, METERED DOSE)
     Route: 065
  61. ZENHALE [Suspect]
     Active Substance: FORMOTEROL FUMARATE\MOMETASONE FUROATE
     Dosage: 2 DOSAGE FORM, BID
     Route: 065
  62. ZENHALE [Suspect]
     Active Substance: FORMOTEROL FUMARATE\MOMETASONE FUROATE
     Dosage: 2 DOSAGE FORM, BID (AEROSOL, METERED DOSE)
     Route: 065
  63. ALVESCO [Concomitant]
     Active Substance: CICLESONIDE
     Indication: Product used for unknown indication
     Dosage: 2 DOSAGE FORM, QD (AEROSOL, METERED DOSE)
     Route: 065
  64. ALVESCO [Concomitant]
     Active Substance: CICLESONIDE
     Route: 065
  65. ALVESCO [Concomitant]
     Active Substance: CICLESONIDE
     Route: 065
  66. ATROVENT [Concomitant]
     Active Substance: IPRATROPIUM BROMIDE
     Indication: Product used for unknown indication
     Route: 065
  67. PREDNISONE [Concomitant]
     Active Substance: PREDNISONE
     Indication: Product used for unknown indication
     Route: 065
  68. SINGULAIR [Concomitant]
     Active Substance: MONTELUKAST SODIUM
     Indication: Product used for unknown indication
     Dosage: 1 DOSAGE FORM, QD
     Route: 065
  69. SINGULAIR [Concomitant]
     Active Substance: MONTELUKAST SODIUM
     Dosage: 1 DOSAGE FORM, QD
     Route: 065
  70. SINGULAIR [Concomitant]
     Active Substance: MONTELUKAST SODIUM
     Route: 065
  71. SPIRIVA [Concomitant]
     Active Substance: TIOTROPIUM BROMIDE MONOHYDRATE
     Indication: Product used for unknown indication
     Dosage: 2 DOSAGE FORM, QD
     Route: 065
  72. Ventil [Concomitant]
     Indication: Product used for unknown indication
     Route: 065
  73. VENTOLIN [Concomitant]
     Active Substance: ALBUTEROL SULFATE
     Indication: Product used for unknown indication
     Route: 065

REACTIONS (43)
  - Animal scratch [Not Recovered/Not Resolved]
  - Blood pressure increased [Not Recovered/Not Resolved]
  - Forced expiratory volume decreased [Not Recovered/Not Resolved]
  - Arthritis infective [Not Recovered/Not Resolved]
  - Back pain [Not Recovered/Not Resolved]
  - Wheezing [Not Recovered/Not Resolved]
  - Skin laceration [Not Recovered/Not Resolved]
  - Sputum discoloured [Not Recovered/Not Resolved]
  - Sleep disorder [Not Recovered/Not Resolved]
  - Chest discomfort [Not Recovered/Not Resolved]
  - Feeling hot [Not Recovered/Not Resolved]
  - Fibromyalgia [Not Recovered/Not Resolved]
  - Flushing [Not Recovered/Not Resolved]
  - Limb discomfort [Not Recovered/Not Resolved]
  - Mobility decreased [Not Recovered/Not Resolved]
  - Osteopenia [Not Recovered/Not Resolved]
  - Eczema [Not Recovered/Not Resolved]
  - Weight decreased [Not Recovered/Not Resolved]
  - Injection site warmth [Not Recovered/Not Resolved]
  - Pain [Not Recovered/Not Resolved]
  - Asthma [Not Recovered/Not Resolved]
  - Weight increased [Not Recovered/Not Resolved]
  - Peripheral swelling [Not Recovered/Not Resolved]
  - Malaise [Not Recovered/Not Resolved]
  - Erythema [Not Recovered/Not Resolved]
  - Abscess [Not Recovered/Not Resolved]
  - Dyspnoea [Not Recovered/Not Resolved]
  - Immunosuppression [Not Recovered/Not Resolved]
  - Influenza [Not Recovered/Not Resolved]
  - Pancreatitis [Not Recovered/Not Resolved]
  - Productive cough [Not Recovered/Not Resolved]
  - Pneumonia [Not Recovered/Not Resolved]
  - Vomiting [Not Recovered/Not Resolved]
  - Nasopharyngitis [Not Recovered/Not Resolved]
  - Cellulitis [Not Recovered/Not Resolved]
  - Viral infection [Not Recovered/Not Resolved]
  - Fatigue [Not Recovered/Not Resolved]
  - Diarrhoea [Not Recovered/Not Resolved]
  - Cough [Not Recovered/Not Resolved]
  - Arthralgia [Not Recovered/Not Resolved]
  - Drug hypersensitivity [Not Recovered/Not Resolved]
  - Headache [Not Recovered/Not Resolved]
  - Drug ineffective [Not Recovered/Not Resolved]
